FAERS Safety Report 6146269-7 (Version None)
Quarter: 2009Q2

REPORT INFORMATION
  Report Type: 
  Country: None (occurrence: None)
  Receive Date: 20090406
  Receipt Date: 20090406
  Transmission Date: 20091009
  Serious: Yes (Disabling)
  Sender: FDA-Public Use
  Company Number: None

PATIENT
  Age: 62 Year
  Sex: Female
  Weight: 94.8018 kg

DRUGS (2)
  1. IMIPRAMINE [Suspect]
     Indication: BIPOLAR DISORDER
     Dosage: 1  1 A DAY
  2. ABILIFY [Suspect]
     Dosage: 1  1 A DAY

REACTIONS (5)
  - ILL-DEFINED DISORDER [None]
  - JOINT STIFFNESS [None]
  - MUSCULOSKELETAL STIFFNESS [None]
  - ORAL DISORDER [None]
  - PRODUCT QUALITY ISSUE [None]
